FAERS Safety Report 24297728 (Version 1)
Quarter: 2024Q3

REPORT INFORMATION
  Report Type: Report from Study
  Country: CN (occurrence: CN)
  Receive Date: 20240909
  Receipt Date: 20240909
  Transmission Date: 20241017
  Serious: Yes (Death, Other)
  Sender: SANOFI AVENTIS
  Company Number: CN-SA-2024SA258400

PATIENT

DRUGS (3)
  1. OXALIPLATIN [Suspect]
     Active Substance: OXALIPLATIN
     Indication: Oesophageal adenocarcinoma
     Dosage: UNK UNK, QW (CYCLES)
  2. CAPECITABINE [Suspect]
     Active Substance: CAPECITABINE
     Indication: Oesophageal adenocarcinoma
     Dosage: UNK UNK, QW (CYCLICAL)
  3. TORIPALIMAB [Concomitant]
     Active Substance: TORIPALIMAB
     Indication: Oesophageal adenocarcinoma
     Dosage: UNK UNK, QCY

REACTIONS (1)
  - Pneumonitis [Fatal]
